FAERS Safety Report 11534115 (Version 1)
Quarter: 2015Q3

REPORT INFORMATION
  Report Type: Spontaneous
  Country: GB (occurrence: GB)
  Receive Date: 20150922
  Receipt Date: 20150922
  Transmission Date: 20151125
  Serious: Yes (Death, Other)
  Sender: FDA-Public Use
  Company Number: GB-ACCORD-033658

PATIENT
  Age: 13 Year
  Sex: Female
  Weight: 56 kg

DRUGS (4)
  1. METHOTREXATE [Suspect]
     Active Substance: METHOTREXATE
     Indication: ACUTE LYMPHOCYTIC LEUKAEMIA
     Route: 042
     Dates: start: 20081209, end: 20081209
  2. PROPOFOL. [Concomitant]
     Active Substance: PROPOFOL
  3. NITROUS OXIDE. [Interacting]
     Active Substance: NITROUS OXIDE
     Indication: INDUCTION OF ANAESTHESIA
     Dosage: 50;50 GASEOUS MIXTURE FOR ANAESTHETIC INDUCTION
     Route: 055
     Dates: start: 20080801, end: 200812
  4. OXYGEN. [Concomitant]
     Active Substance: OXYGEN

REACTIONS (3)
  - Off label use [Unknown]
  - Drug interaction [Unknown]
  - Leukoencephalopathy [Fatal]

NARRATIVE: CASE EVENT DATE: 20081215
